FAERS Safety Report 4467695-8 (Version None)
Quarter: 2004Q4

REPORT INFORMATION
  Report Type: 
  Country: None (occurrence: None)
  Receive Date: 20041001
  Receipt Date: 20040921
  Transmission Date: 20050328
  Serious: Yes (Other)
  Sender: FDA-Public Use
  Company Number: 2004068939

PATIENT
  Age: 27 Year
  Sex: Female
  Weight: 68.0396 kg

DRUGS (2)
  1. ZYRTEC [Suspect]
     Indication: MULTIPLE ALLERGIES
     Dosage: (1 IN 1 D),ORAL
     Route: 048
     Dates: start: 20040917, end: 20040901
  2. CO-TYLENOL (CHLORPHENAMINE MALEATE, PARACETAMOL, PSEUDOEPHEDRINE HYDRO [Suspect]
     Indication: MULTIPLE ALLERGIES

REACTIONS (6)
  - BLEEDING TIME ABNORMAL [None]
  - CONVULSION [None]
  - DRUG EXPOSURE DURING PREGNANCY [None]
  - DYSKINESIA [None]
  - SOMNOLENCE [None]
  - TREMOR [None]
